FAERS Safety Report 23994255 (Version 1)
Quarter: 2024Q2

REPORT INFORMATION
  Report Type: Report from Study
  Country: JP (occurrence: JP)
  Receive Date: 20240620
  Receipt Date: 20240620
  Transmission Date: 20240716
  Serious: Yes (Hospitalization, Other)
  Sender: FDA-Public Use
  Company Number: JP-JNJFOC-20220643771

PATIENT
  Age: 69 Year
  Sex: Male

DRUGS (14)
  1. EMTRICITABINE\RILPIVIRINE HYDROCHLORIDE\TENOFOVIR ALAFENAMIDE FUMARATE [Suspect]
     Active Substance: EMTRICITABINE\RILPIVIRINE HYDROCHLORIDE\TENOFOVIR ALAFENAMIDE FUMARATE
     Indication: HIV infection
     Dosage: 1 DOSAGE FORM, QD
     Route: 048
     Dates: start: 20181031
  2. NIZORAL [Concomitant]
     Active Substance: KETOCONAZOLE
     Indication: Dry skin
     Dosage: DOSE UNKNOWN
     Route: 061
     Dates: start: 20220126, end: 20220416
  3. COIX SEED EXTRACT [COIX SPP. SEED] [Concomitant]
     Indication: Skin papilloma
     Dosage: DOSE UNKNOWN
     Route: 048
     Dates: start: 20150513, end: 201609
  4. COIX SEED EXTRACT [COIX SPP. SEED] [Concomitant]
     Dosage: DOSE UNKNOWN
     Route: 048
     Dates: start: 20190610, end: 20200210
  5. KERATINAMIN [UREA] [Concomitant]
     Indication: Hyperkeratosis
     Dosage: UNK
     Route: 061
     Dates: start: 20150513, end: 20190610
  6. ALESION [Concomitant]
     Active Substance: EPINASTINE HYDROCHLORIDE
     Dosage: DOSE UNKNOWN
     Route: 047
     Dates: start: 20200226, end: 20200509
  7. NASONEX [Concomitant]
     Active Substance: MOMETASONE FUROATE
     Indication: Seasonal allergy
     Dosage: DOSE UNKNOWN
     Route: 045
     Dates: start: 20160203, end: 201605
  8. NASONEX [Concomitant]
     Active Substance: MOMETASONE FUROATE
     Dosage: DOSE UNKNOWN
     Route: 045
     Dates: start: 20170201, end: 201705
  9. NASONEX [Concomitant]
     Active Substance: MOMETASONE FUROATE
     Dosage: DOSE UNKNOWN
     Route: 045
     Dates: start: 20180214, end: 201805
  10. NASONEX [Concomitant]
     Active Substance: MOMETASONE FUROATE
     Dosage: DOSE UNKNOWN
     Route: 045
     Dates: start: 20190125, end: 201904
  11. NASONEX [Concomitant]
     Active Substance: MOMETASONE FUROATE
     Dosage: DOSE UNKNOWN
     Route: 045
     Dates: start: 20200210, end: 20200509
  12. NASONEX [Concomitant]
     Active Substance: MOMETASONE FUROATE
     Dosage: DOSE UNKNOWN
     Route: 045
     Dates: start: 20210113, end: 20210412
  13. FLUNASE [FLUNISOLIDE] [Concomitant]
     Dosage: UNK
     Route: 045
     Dates: start: 20230127, end: 20230414
  14. PATANOL [Concomitant]
     Active Substance: OLOPATADINE HYDROCHLORIDE
     Dosage: UNK
     Route: 047
     Dates: start: 20230127, end: 20240325

REACTIONS (2)
  - Lung adenocarcinoma [Recovering/Resolving]
  - Dry skin [Recovering/Resolving]

NARRATIVE: CASE EVENT DATE: 20210714
